FAERS Safety Report 8439207 (Version 2)
Quarter: 2013Q2

REPORT INFORMATION
  Report Type: Spontaneous
  Country: US (occurrence: None)
  Receive Date: 20120104
  Receipt Date: 20120508
  Transmission Date: 20140414
  Serious: Yes (Other)
  Sender: FDA-Public Use
  Company Number: 2011HGS-002652

PATIENT
  Age: 68 Year
  Sex: Female
  Weight: 79.83 kg

DRUGS (16)
  1. BENLYSTA [Suspect]
     Indication: FIBROMYALGIA
     Dosage: 1 IN 28 D
     Route: 041
     Dates: start: 20110909
  2. BENLYSTA [Suspect]
     Indication: SYSTEMIC LUPUS ERYTHEMATOSUS
     Dosage: 1 IN 28 D
     Route: 041
     Dates: start: 20110909
  3. METHOTREXATE [Concomitant]
  4. AMBIEN [Concomitant]
  5. PAMINE (HYOSCINE METHOBROMIDE) (HYOSCINE METHOBROMIDE) [Concomitant]
  6. COMBIGAN (BRIMONIDINE TARTRATE) (BRIMONDINE TARTRATE) [Concomitant]
  7. DIOVAN [Concomitant]
  8. AMLODIPINE BESILATE (AMLODIPINE BESILATE) (AMLODIPINE BESILATE) [Concomitant]
  9. TOPROL (METOPROLOL SUCCINATE) (METOPROLOL SUCCINATE) [Concomitant]
  10. ANTIVERT (MECLOZINE HYDROCHLORIDE) (MECLOZINE HYDROCHLORIDE) [Concomitant]
  11. SYNTHROID (LEVOTHYROXINE SODIUM) (LEVOTHYROXINE SODIUM) [Concomitant]
  12. ZOLOFT [Concomitant]
  13. DEXILANT (PROTON PUMP INHIBITORS) (NULL) [Concomitant]
  14. PROBIOTICS (LACTOBACILLUS REUTER1) (LACTOBACILLUS REUTER1) [Concomitant]
  15. FOLIC ACID [Concomitant]
  16. PREDNISONE [Concomitant]

REACTIONS (3)
  - OFF LABEL USE [None]
  - MIGRAINE [None]
  - HEADACHE [None]
